FAERS Safety Report 23947694 (Version 1)
Quarter: 2024Q2

REPORT INFORMATION
  Report Type: Spontaneous
  Country: RU (occurrence: RU)
  Receive Date: 20240606
  Receipt Date: 20240606
  Transmission Date: 20240716
  Serious: Yes (Other)
  Sender: FDA-Public Use
  Company Number: RU-RZN-LIT/RUS/24/0008062

PATIENT

DRUGS (1)
  1. IMATINIB [Suspect]
     Active Substance: IMATINIB
     Indication: Product used for unknown indication
     Route: 064

REACTIONS (3)
  - Atrial septal defect [Unknown]
  - Foetal exposure during pregnancy [Unknown]
  - Premature baby [Unknown]
